FAERS Safety Report 9644214 (Version 3)
Quarter: 2014Q1

REPORT INFORMATION
  Report Type: Report from Study
  Country: CA (occurrence: CA)
  Receive Date: 20131024
  Receipt Date: 20140228
  Transmission Date: 20141002
  Serious: Yes (Other)
  Sender: FDA-Public Use
  Company Number: CA-ROCHE-1293043

PATIENT
  Sex: Female

DRUGS (1)
  1. LUCENTIS [Suspect]
     Indication: DIABETIC RETINAL OEDEMA
     Dosage: RECEIVED ON 22 JUL 2013.
     Route: 050

REACTIONS (6)
  - Eye haemorrhage [Recovering/Resolving]
  - Malaise [Unknown]
  - Eye swelling [Not Recovered/Not Resolved]
  - Eye pain [Unknown]
  - Vision blurred [Recovering/Resolving]
  - Retinal cyst [Unknown]
